FAERS Safety Report 12206208 (Version 2)
Quarter: 2016Q1

REPORT INFORMATION
  Report Type: Spontaneous
  Country: US (occurrence: US)
  Receive Date: 20160324
  Receipt Date: 20160330
  Transmission Date: 20160526
  Serious: Yes (Hospitalization)
  Sender: FDA-Public Use
  Company Number: US-HORIZON-RAV-0058-2016

PATIENT
  Age: 3 Year
  Sex: Female

DRUGS (2)
  1. ANAMIX FR FORMULA [Concomitant]
  2. RAVICTI [Suspect]
     Active Substance: GLYCEROL PHENYLBUTYRATE
     Indication: ARGINASE DEFICIENCY
     Dosage: 1.5 ML, TID
     Dates: start: 20160217

REACTIONS (2)
  - Pharyngitis [Recovered/Resolved]
  - Viral infection [Recovered/Resolved]

NARRATIVE: CASE EVENT DATE: 20160317
